FAERS Safety Report 8030794-8 (Version None)
Quarter: 2012Q1

REPORT INFORMATION
  Report Type: 
  Country: None (occurrence: None)
  Receive Date: 20120109
  Receipt Date: 20120105
  Transmission Date: 20120608
  Serious: Yes (Life-Threatening, Hospitalization, Disabling)
  Sender: FDA-Public Use
  Company Number: PHHY2012BE001163

PATIENT
  Sex: Male

DRUGS (2)
  1. VOLTAREN [Suspect]
     Indication: MYALGIA
     Dosage: 75 MG, BID
     Route: 030
     Dates: start: 20060315, end: 20060317
  2. CHLOROQUINE PHOSPHATE [Concomitant]
     Dosage: 800 MG, UNK
     Dates: start: 20060316

REACTIONS (10)
  - NECROTISING FASCIITIS [None]
  - STREPTOCOCCAL INFECTION [None]
  - RENAL FAILURE [None]
  - SWELLING [None]
  - INFLAMMATION [None]
  - HYPOTENSION [None]
  - MUSCULOSKELETAL PAIN [None]
  - MUSCLE NECROSIS [None]
  - RED BLOOD CELL SEDIMENTATION RATE INCREASED [None]
  - C-REACTIVE PROTEIN INCREASED [None]
